FAERS Safety Report 6245316-1 (Version None)
Quarter: 2009Q2

REPORT INFORMATION
  Report Type: 
  Country: None (occurrence: None)
  Receive Date: 20090623
  Receipt Date: 20090623
  Transmission Date: 20091009
  Serious: Yes (Hospitalization)
  Sender: FDA-Public Use
  Company Number: None

PATIENT
  Age: 38 Year
  Sex: Female
  Weight: 78.4723 kg

DRUGS (1)
  1. TINDAMAX [Suspect]
     Indication: VAGINITIS BACTERIAL
     Dosage: 1 TABLET 1 X DAILY PO
     Route: 048
     Dates: start: 20090427, end: 20090502

REACTIONS (3)
  - CHEST PAIN [None]
  - CONFUSIONAL STATE [None]
  - HEPATITIS TOXIC [None]
